FAERS Safety Report 13433506 (Version 1)
Quarter: 2017Q2

REPORT INFORMATION
  Report Type: Spontaneous
  Country: SE (occurrence: SE)
  Receive Date: 20170412
  Receipt Date: 20170412
  Transmission Date: 20170830
  Serious: Yes (Other)
  Sender: FDA-Public Use
  Company Number: SE-TEVA-758422ISR

PATIENT
  Age: 76 Year
  Sex: Female

DRUGS (1)
  1. DOCETAXEL. [Suspect]
     Active Substance: DOCETAXEL
     Route: 042

REACTIONS (5)
  - Diarrhoea [Unknown]
  - Headache [Unknown]
  - Neuropathy peripheral [Unknown]
  - Dyspepsia [Unknown]
  - Mucosal inflammation [Unknown]
